FAERS Safety Report 5743946-4 (Version None)
Quarter: 2008Q2

REPORT INFORMATION
  Report Type: 
  Country: None (occurrence: None)
  Receive Date: 20080520
  Receipt Date: 20080514
  Transmission Date: 20081010
  Serious: Yes (Hospitalization)
  Sender: FDA-Public Use
  Company Number: JP-BAYER-200810453BYL

PATIENT
  Age: 87 Year
  Sex: Female
  Weight: 50 kg

DRUGS (5)
  1. ASPIRIN [Suspect]
     Indication: ARTERIOSCLEROSIS OBLITERANS
     Dosage: TOTAL DAILY DOSE: 100 MG  UNIT DOSE: 100 MG
     Route: 048
     Dates: start: 20070801, end: 20080201
  2. ASPIRIN [Suspect]
     Dosage: TOTAL DAILY DOSE: 100 MG  UNIT DOSE: 100 MG
     Route: 048
     Dates: start: 20080306, end: 20080312
  3. LORCAM [Suspect]
     Indication: PROCEDURAL PAIN
     Dosage: UNIT DOSE: 4 MG
     Route: 048
     Dates: start: 20080306, end: 20080312
  4. MUCOSTA [Concomitant]
     Dosage: UNIT DOSE: 100 MG
     Route: 048
     Dates: start: 20080306, end: 20080324
  5. FAMOTIDINE [Concomitant]
     Route: 048
     Dates: start: 20080306, end: 20080324

REACTIONS (1)
  - ANALGESIC ASTHMA SYNDROME [None]
